FAERS Safety Report 8307145-4 (Version None)
Quarter: 2012Q2

REPORT INFORMATION
  Report Type: 
  Country: None (occurrence: None)
  Receive Date: 20120424
  Receipt Date: 20120422
  Transmission Date: 20120825
  Serious: Yes (Other)
  Sender: FDA-Public Use
  Company Number: US-PFIZER INC-2012099299

PATIENT
  Sex: Male
  Weight: 72.3 kg

DRUGS (3)
  1. TOPROL-XL [Concomitant]
     Indication: HYPERTENSION
     Dosage: UNK
  2. IBUPROFEN (ADVIL) [Suspect]
     Indication: MUSCLE SPASMS
     Dosage: 200 MG, 6X/DAY
     Route: 048
     Dates: start: 20120316
  3. LISINOPRIL [Concomitant]
     Indication: HYPERTENSION
     Dosage: UNK

REACTIONS (2)
  - URINARY RETENTION [None]
  - FLUID RETENTION [None]
